FAERS Safety Report 9485633 (Version 1)
Quarter: 2013Q3

REPORT INFORMATION
  Report Type: Spontaneous
  Country: US (occurrence: US)
  Receive Date: 20130829
  Receipt Date: 20130829
  Transmission Date: 20140515
  Serious: Yes (Hospitalization)
  Sender: FDA-Public Use
  Company Number: US-ROCHE-1264111

PATIENT
  Sex: Female

DRUGS (25)
  1. VALIUM [Suspect]
     Indication: PRODUCT USED FOR UNKNOWN INDICATION
     Route: 065
  2. GABAPENTIN [Concomitant]
     Dosage: ONE CAPSULE, 2 TIMES DAILY
     Route: 065
  3. CITALOPRAM HYDROBROMIDE [Concomitant]
     Dosage: ONCE DAILY
     Route: 048
  4. AXITINIB [Concomitant]
     Route: 048
  5. BUPROPION HCL [Concomitant]
     Dosage: SR 12 HR, ONE EVERY OTHER DAY FOR ONE WEEK, IF TOLERATED THEN INCREASE TO DAILY.
     Route: 048
  6. DAPTOMYCIN [Concomitant]
     Route: 042
  7. DIPHENHYDRAMINE HCL [Concomitant]
     Indication: INSOMNIA
     Dosage: ONE CAPSULE PER NIGHT AS REQUIRED.
     Route: 048
  8. HYDROCODONE/ACETAMINOPHEN [Concomitant]
     Indication: PAIN
     Dosage: 7.5 TO 325 MCG, 1 TO 2 TABS BY MOUTH EVERY FOUR HOURS AS NEEDED
     Route: 048
  9. ENOXAPARIN SODIUM [Concomitant]
     Dosage: 40 MG/ 0.4 ML
     Route: 058
  10. FAMOTIDINE [Concomitant]
     Dosage: ONE TABLET ONCE DAILY
     Route: 048
  11. LEVOTHYROXINE SODIUM [Concomitant]
     Dosage: 50 MCG, ONE TABLET BY MOUTH ONCE DAILY
     Route: 048
  12. MORPHINE SULFATE [Concomitant]
     Dosage: 5 MG/ ML   FORM: SOLUTION
     Route: 042
  13. POLYETHYLENE GLYCOL [Concomitant]
     Indication: CONSTIPATION
     Dosage: POLYETHYLENE GLYCOL 3350
     Route: 048
  14. PROCHLORPERAZINE MALEATE [Concomitant]
     Indication: NAUSEA
     Route: 048
  15. PROCHLORPERAZINE MALEATE [Concomitant]
     Indication: VOMITING
  16. SODIUM CHLORIDE [Concomitant]
     Dosage: 0.9 PERCENT NACL SOLUTION,  1 TO 10 ML EVERY 8 HOURS AS NEEDED.
     Route: 050
  17. SODIUM CHLORIDE [Concomitant]
     Dosage: 10 TO 40 ML, 0.9 NACL SOLUTION EVERY 8 HOURS AS NEEDED.
     Route: 050
  18. SODIUM CHLORIDE [Concomitant]
     Dosage: 0.9 PERCENT NACL, 10 TO 80 ML BY INTRACATHETER ROUTE AS NEEDED (LINE FLUSH).
     Route: 050
  19. TIZANIDINE HCL [Concomitant]
     Indication: MUSCLE SPASTICITY
     Dosage: ONE TAB EVERY 8 HOURS AS NEEDED
     Route: 048
  20. ZOLPIDEM TARTRATE [Concomitant]
     Indication: INSOMNIA
     Dosage: ONE TABLET BY MOUTH NIGHTLY AS NEEDED
     Route: 048
  21. DAPTOMYCIN [Concomitant]
  22. AVASTIN [Concomitant]
     Route: 065
  23. INTERFERON ALFA-2A [Concomitant]
     Route: 065
  24. VANCOMYCIN [Concomitant]
  25. ROCEPHIN [Concomitant]
     Route: 065

REACTIONS (2)
  - Staphylococcal infection [Unknown]
  - Full blood count decreased [Unknown]
